FAERS Safety Report 9098703 (Version 1)
Quarter: 2013Q1

REPORT INFORMATION
  Report Type: Spontaneous
  Country: PL (occurrence: PL)
  Receive Date: 20130213
  Receipt Date: 20130213
  Transmission Date: 20140127
  Serious: Yes (Other)
  Sender: FDA-Public Use
  Company Number: PL-PFIZER INC-2013025778

PATIENT
  Age: 29 Year
  Sex: Male

DRUGS (2)
  1. MEDROL [Suspect]
     Indication: GLOMERULONEPHRITIS
     Dosage: 16 MG, UNK
  2. CYCLOSPORINE [Concomitant]

REACTIONS (1)
  - Osteochondrosis [Unknown]
